FAERS Safety Report 10103213 (Version 1)
Quarter: 2014Q2

REPORT INFORMATION
  Report Type: Spontaneous
  Country: US (occurrence: US)
  Receive Date: 20140424
  Receipt Date: 20140424
  Transmission Date: 20141212
  Serious: Yes (Hospitalization)
  Sender: FDA-Public Use
  Company Number: US-BRISTOL-MYERS SQUIBB COMPANY-20188686

PATIENT
  Age: 78 Year
  Sex: Female

DRUGS (13)
  1. ELIQUIS [Suspect]
     Dates: start: 201307
  2. SOTALOL HCL [Concomitant]
  3. ASPIRIN [Concomitant]
  4. LIPITOR [Concomitant]
  5. OCUVITE [Concomitant]
     Route: 048
  6. ESTRADIOL [Concomitant]
  7. BRIMONIDINE TARTRATE [Concomitant]
  8. GLUCOSAMINE SULFATE [Concomitant]
  9. VITAMIN D [Concomitant]
  10. CALCIUM CARBONATE [Concomitant]
  11. ERGOCALCIFEROL [Concomitant]
  12. AZOPT [Concomitant]
  13. PANTOPRAZOLE SODIUM [Concomitant]

REACTIONS (2)
  - Renal haemorrhage [Unknown]
  - International normalised ratio increased [Unknown]
